FAERS Safety Report 21923610 (Version 1)
Quarter: 2023Q1

REPORT INFORMATION
  Report Type: Spontaneous
  Country: FR (occurrence: FR)
  Receive Date: 20230130
  Receipt Date: 20230130
  Transmission Date: 20230418
  Serious: Yes (Disabling, Other)
  Sender: FDA-Public Use
  Company Number: None

PATIENT
  Age: 35 Year
  Sex: Male
  Weight: 95 kg

DRUGS (11)
  1. ENTECAVIR [Suspect]
     Active Substance: ENTECAVIR
     Indication: Opportunistic infection prophylaxis
     Route: 048
  2. RUXOLITINIB [Suspect]
     Active Substance: RUXOLITINIB
     Indication: Chronic graft versus host disease
     Route: 048
  3. PENICILLIN V BENZATHINE [Suspect]
     Active Substance: PENICILLIN V BENZATHINE
     Indication: Opportunistic infection prophylaxis
     Route: 048
  4. SULFAMETHOXAZOLE [Suspect]
     Active Substance: SULFAMETHOXAZOLE
     Indication: Opportunistic infection prophylaxis
     Route: 048
  5. PREDNISONE [Suspect]
     Active Substance: PREDNISONE
     Indication: Chronic graft versus host disease
     Route: 048
  6. TRIMETHOPRIM [Suspect]
     Active Substance: TRIMETHOPRIM
     Indication: Opportunistic infection prophylaxis
     Route: 048
  7. METHOTREXATE [Suspect]
     Active Substance: METHOTREXATE
     Indication: Chronic graft versus host disease
  8. POSACONAZOLE [Suspect]
     Active Substance: POSACONAZOLE
     Indication: Opportunistic infection prophylaxis
     Route: 048
  9. AMITRIPTYLINE HYDROCHLORIDE [Suspect]
     Active Substance: AMITRIPTYLINE HYDROCHLORIDE
     Indication: Product used for unknown indication
     Route: 048
  10. VALACYCLOVIR HYDROCHLORIDE [Suspect]
     Active Substance: VALACYCLOVIR HYDROCHLORIDE
     Indication: Opportunistic infection prophylaxis
     Route: 048
  11. PREVYMIS [Suspect]
     Active Substance: LETERMOVIR
     Indication: Opportunistic infection prophylaxis
     Route: 048

REACTIONS (1)
  - Optic neuropathy [Not Recovered/Not Resolved]

NARRATIVE: CASE EVENT DATE: 20221213
